FAERS Safety Report 4334807-6 (Version None)
Quarter: 2004Q2

REPORT INFORMATION
  Report Type: 
  Country: None (occurrence: None)
  Receive Date: 20040407
  Receipt Date: 20040407
  Transmission Date: 20050107
  Serious: Yes (Life-Threatening, Hospitalization)
  Sender: FDA-Public Use
  Company Number: None

PATIENT
  Age: 76 Year
  Sex: Female
  Weight: 83 kg

DRUGS (14)
  1. LINEZOLID [Suspect]
     Indication: GLYCOPEPTIDE ANTIBIOTIC RESISTANT ENTEROCOCCAL INFECTION
     Dosage: 600 MG IV Q 12 H
     Route: 042
  2. HEPARIN [Concomitant]
  3. HYDRALAZINE HCL [Concomitant]
  4. OCTREOTIDE ACETATE [Concomitant]
  5. RANITIDINE [Concomitant]
  6. FUROSEMIDE [Concomitant]
  7. HYDROMORPHONE [Concomitant]
  8. LEVOTHYROMINE [Concomitant]
  9. LOPERAMIDE HCL [Concomitant]
  10. MAGNESIUM SULFATE [Concomitant]
  11. METOPROLOL [Concomitant]
  12. PIPERACILLIN/TAZOBACTAM [Concomitant]
  13. POTASSIUM CHLORIDE [Concomitant]
  14. METOCLOPRAMIDE [Concomitant]

REACTIONS (3)
  - HAEMATOCRIT DECREASED [None]
  - HAEMOGLOBIN DECREASED [None]
  - THROMBOCYTOPENIA [None]
